FAERS Safety Report 8535618-8 (Version None)
Quarter: 2012Q3

REPORT INFORMATION
  Report Type: 
  Country: None (occurrence: None)
  Receive Date: 20120725
  Receipt Date: 20120716
  Transmission Date: 20120928
  Serious: Yes (Hospitalization)
  Sender: FDA-Public Use
  Company Number: US-BAYER-2012-072951

PATIENT
  Age: 27 Year
  Sex: Female
  Weight: 63.946 kg

DRUGS (8)
  1. AUGMENTIN '500' [Concomitant]
     Dosage: 875 MG, BID
     Route: 048
     Dates: start: 20070116
  2. BIAXIN [Concomitant]
     Dosage: 500 MG, BID
     Route: 048
     Dates: start: 20070130
  3. YAZ [Suspect]
  4. NASONEX [Concomitant]
     Dosage: 2 SPRAYS/ NOSTRIL DAILY
     Dates: start: 20070130
  5. LEXAPRO [Concomitant]
     Dosage: 20 MG, DAILY
     Route: 048
  6. DARVOCET-N 50 [Concomitant]
     Dosage: AS NEEDED EVERY 4 HOURS
     Route: 048
  7. MUCINEX [Concomitant]
     Dosage: UNK UNK, PRN
     Dates: start: 20070130
  8. IBUPROFEN [Concomitant]

REACTIONS (2)
  - DEEP VEIN THROMBOSIS [None]
  - PULMONARY EMBOLISM [None]
